FAERS Safety Report 9234888 (Version 2)
Quarter: 2013Q2

REPORT INFORMATION
  Report Type: Spontaneous
  Country: JP (occurrence: JP)
  Receive Date: 20130416
  Receipt Date: 20130426
  Transmission Date: 20140414
  Serious: No
  Sender: FDA-Public Use
  Company Number: JP-009507513-1304JPN005968

PATIENT
  Age: 83 Year
  Sex: Female
  Weight: 40 kg

DRUGS (4)
  1. TRYPTANOL [Suspect]
     Indication: POST HERPETIC NEURALGIA
     Dosage: 10 MG, ONCE
     Route: 048
     Dates: start: 20130409, end: 20130409
  2. TEGRETOL [Concomitant]
     Dosage: 100 MG, QD
     Route: 048
     Dates: start: 20130406, end: 20130409
  3. TRAMACET [Concomitant]
     Dosage: 3 DF, QD
     Route: 048
     Dates: start: 20130409, end: 20130415
  4. PRIMPERAN [Concomitant]
     Dosage: 15 MG, QD
     Route: 048
     Dates: start: 20130409, end: 20130415

REACTIONS (1)
  - Pyrexia [Unknown]
